FAERS Safety Report 21059438 (Version 2)
Quarter: 2022Q3

REPORT INFORMATION
  Report Type: Spontaneous
  Country: US (occurrence: US)
  Receive Date: 20220708
  Receipt Date: 20220809
  Transmission Date: 20221027
  Serious: No
  Sender: FDA-Public Use
  Company Number: US-ORGANON-O2207USA000276

PATIENT
  Sex: Male

DRUGS (2)
  1. PREGNYL [Suspect]
     Active Substance: CHORIOGONADOTROPIN ALFA
     Dosage: 500 DOSAGE FORM (500 UNITS 3 TIMES A WEEK)
  2. STERILE WATER [Suspect]
     Active Substance: WATER
     Dosage: UNK

REACTIONS (5)
  - Poor quality product administered [Unknown]
  - Product packaging quantity issue [Unknown]
  - Product dose omission issue [Unknown]
  - Circumstance or information capable of leading to medication error [Unknown]
  - No adverse event [Unknown]

NARRATIVE: CASE EVENT DATE: 20220101
